FAERS Safety Report 5591529-1 (Version None)
Quarter: 2008Q1

REPORT INFORMATION
  Report Type: 
  Country: None (occurrence: None)
  Receive Date: 20080111
  Receipt Date: 20080104
  Transmission Date: 20080703
  Serious: Yes (Death, Other)
  Sender: FDA-Public Use
  Company Number: 2008US000076

PATIENT
  Age: 55 Year
  Sex: Female

DRUGS (1)
  1. PROGRAF [Suspect]
     Indication: PANCREAS TRANSPLANT

REACTIONS (12)
  - BLOOD PRESSURE INCREASED [None]
  - COMA [None]
  - CONVULSION [None]
  - DRUG LEVEL INCREASED [None]
  - HYPERTENSIVE ENCEPHALOPATHY [None]
  - LEUKOENCEPHALOPATHY [None]
  - NEUROTOXICITY [None]
  - PARTIAL SEIZURES [None]
  - REVERSIBLE POSTERIOR LEUKOENCEPHALOPATHY SYNDROME [None]
  - SENSORY LOSS [None]
  - SEPSIS [None]
  - TREATMENT NONCOMPLIANCE [None]
